FAERS Safety Report 10136475 (Version 2)
Quarter: 2014Q2

REPORT INFORMATION
  Report Type: Spontaneous
  Country: US (occurrence: None)
  Receive Date: 20140425
  Receipt Date: 20140507
  Transmission Date: 20141212
  Serious: Yes (Hospitalization)
  Sender: FDA-Public Use
  Company Number: UTC-047280

PATIENT
  Age: 4 Year
  Sex: Female
  Weight: 11.29 kg

DRUGS (3)
  1. REMODULIN [Suspect]
     Indication: COR PULMONALE CHRONIC
     Dosage: 57.6 MCG (0.04 MCG,1 IN 1 MIN),SUBCUTANEOUS
     Route: 058
     Dates: start: 20140213
  2. REVATIO (SILDENAFIL CITRATE) [Concomitant]
  3. TRACLEER (BOSENTAN) [Concomitant]

REACTIONS (3)
  - Pneumonia [None]
  - Acute respiratory failure [None]
  - Product packaging quantity issue [None]
